FAERS Safety Report 10143352 (Version 3)
Quarter: 2014Q2

REPORT INFORMATION
  Report Type: Report from Study
  Country: CA (occurrence: CA)
  Receive Date: 20140430
  Receipt Date: 20140507
  Transmission Date: 20141212
  Serious: Yes (Hospitalization, Other)
  Sender: FDA-Public Use
  Company Number: PHHY2012CA014232

PATIENT
  Age: 70 Year
  Sex: Male

DRUGS (2)
  1. ZOMETA [Suspect]
     Indication: PROSTATE CANCER
     Dosage: 4 MG, EVERY 3 MONTHS (12 WEEKS)
     Route: 042
     Dates: start: 20120213
  2. STEROIDS NOS [Concomitant]
     Dosage: UNK UKN, UNK
     Dates: start: 20121017

REACTIONS (18)
  - Pneumonia [Unknown]
  - Pain [Unknown]
  - Prostate cancer [Unknown]
  - Malignant neoplasm progression [Unknown]
  - Burning sensation [Unknown]
  - Body temperature decreased [Unknown]
  - Blood pressure increased [Unknown]
  - Influenza like illness [Unknown]
  - Tremor [Unknown]
  - Malaise [Unknown]
  - Chills [Unknown]
  - Feeling cold [Unknown]
  - Pyrexia [Unknown]
  - Myalgia [Unknown]
  - Arthralgia [Unknown]
  - Muscle spasms [Not Recovered/Not Resolved]
  - Pruritus [Unknown]
  - Mean cell haemoglobin decreased [Unknown]
